FAERS Safety Report 11602899 (Version 2)
Quarter: 2016Q4

REPORT INFORMATION
  Report Type: Report from Study
  Country: US (occurrence: US)
  Receive Date: 20151006
  Receipt Date: 20161005
  Transmission Date: 20170206
  Serious: No
  Sender: FDA-Public Use
  Company Number: US-AMGEN-USASP2015079708

PATIENT
  Age: 60 Year
  Sex: Female

DRUGS (1)
  1. PROLIA [Suspect]
     Active Substance: DENOSUMAB
     Indication: PRODUCT USED FOR UNKNOWN INDICATION
     Dosage: UNK
     Route: 065

REACTIONS (7)
  - Vertebral osteophyte [Not Recovered/Not Resolved]
  - Plantar fasciitis [Unknown]
  - Osteoarthritis [Unknown]
  - Bone cyst [Unknown]
  - Arthropathy [Unknown]
  - Blood iron decreased [Unknown]
  - Arthritis [Unknown]
